FAERS Safety Report 7203443-6 (Version None)
Quarter: 2010Q4

REPORT INFORMATION
  Report Type: 
  Country: None (occurrence: None)
  Receive Date: 20101230
  Receipt Date: 20101220
  Transmission Date: 20110411
  Serious: Yes (Hospitalization)
  Sender: FDA-Public Use
  Company Number: US-PFIZER INC-2010175965

PATIENT
  Sex: Female

DRUGS (1)
  1. EFFEXOR XR [Suspect]
     Indication: DEPRESSION
     Dosage: 300 MG, 1X/DAY
     Route: 048

REACTIONS (4)
  - BLOOD GLUCOSE INCREASED [None]
  - MOOD SWINGS [None]
  - OBESITY SURGERY [None]
  - WRONG TECHNIQUE IN DRUG USAGE PROCESS [None]
